FAERS Safety Report 9559327 (Version 1)
Quarter: 2013Q3

REPORT INFORMATION
  Report Type: Spontaneous
  Country: US (occurrence: None)
  Receive Date: 20130925
  Receipt Date: 20130925
  Transmission Date: 20140515
  Serious: Yes (Hospitalization, Other)
  Sender: FDA-Public Use
  Company Number: AUR-APL-2013-07898

PATIENT
  Age: 75 Year
  Sex: Female
  Weight: 53.51 kg

DRUGS (5)
  1. TAMSULOSIN (TAMSULOSIN) [Suspect]
     Indication: URINARY RETENTION
  2. DETROL LA (TOLTERODINE L-TARTRATE) [Suspect]
     Indication: BLADDER DISORDER
     Route: 048
     Dates: start: 20070711, end: 2013
  3. DETROL LA (TOLTERODINE L-TARTRATE) [Suspect]
     Indication: URINARY INCONTINENCE
     Route: 048
     Dates: start: 20070711, end: 2013
  4. DETROL LA (TOLTERODINE L-TARTRATE) [Suspect]
     Route: 048
     Dates: start: 20070711, end: 2013
  5. FLOMAX (TAMSULOSIN HYDROCHLORIDE) [Concomitant]

REACTIONS (2)
  - Myocardial infarction [None]
  - Urinary retention [None]
